FAERS Safety Report 11190480 (Version 1)
Quarter: 2015Q2

REPORT INFORMATION
  Report Type: Report from Study
  Country: US (occurrence: None)
  Receive Date: 20150603
  Receipt Date: 20150603
  Transmission Date: 20150821
  Serious: No
  Sender: FDA-Public Use
  Company Number: 2015TASUS000774

PATIENT
  Age: 34 Year
  Sex: Male
  Weight: 83.9 kg

DRUGS (2)
  1. CHOLESTYRAMINE (CHOLESTYRAMINE) [Concomitant]
     Active Substance: CHOLESTYRAMINE
  2. HETLIOZ [Suspect]
     Active Substance: TASIMELTEON
     Indication: CIRCADIAN RHYTHM SLEEP DISORDER
     Dosage: 20 MG, QHS, ORAL
     Route: 048
     Dates: start: 20150303, end: 20150427

REACTIONS (1)
  - Hepatic enzyme increased [None]

NARRATIVE: CASE EVENT DATE: 20150427
